FAERS Safety Report 6027966-0 (Version None)
Quarter: 2008Q4

REPORT INFORMATION
  Report Type: 
  Country: None (occurrence: None)
  Receive Date: 20081230
  Receipt Date: 20081210
  Transmission Date: 20090506
  Serious: Yes (Hospitalization)
  Sender: FDA-Public Use
  Company Number: 14440101

PATIENT
  Age: 51 Year
  Sex: Female

DRUGS (5)
  1. REVIA [Suspect]
     Dosage: 28 DOSAGE FORM TOTAL
     Dates: start: 20081113, end: 20081113
  2. LAROXYL (AMITRIPTYLINE HCL) [Suspect]
     Dosage: 800 MILLIGRAM TOTAL
  3. OXAZEPAM [Suspect]
     Dosage: 20 DOSAGE FORM TOTAL
     Dates: start: 20081113, end: 20081113
  4. BENAZEPRIL HCL AND HYDROCHLOROTHIAZIDE [Suspect]
     Dosage: 30 DOSAGE FORM TOTAL
     Dates: start: 20081113, end: 20081113
  5. ALCOHOL [Suspect]
     Dates: start: 20081113, end: 20081113

REACTIONS (3)
  - BLOOD ALCOHOL INCREASED [None]
  - COMA [None]
  - MULTIPLE DRUG OVERDOSE INTENTIONAL [None]
